FAERS Safety Report 17071800 (Version 1)
Quarter: 2019Q4

REPORT INFORMATION
  Report Type: Report from Study
  Country: CA (occurrence: CA)
  Receive Date: 20191125
  Receipt Date: 20191125
  Transmission Date: 20200122
  Serious: Yes (Hospitalization, Other)
  Sender: FDA-Public Use
  Company Number: CA-PFIZER INC-2019503902

PATIENT
  Age: 75 Year
  Sex: Male

DRUGS (2)
  1. MEPOLIZUMAB [Suspect]
     Active Substance: MEPOLIZUMAB
     Indication: ASTHMA
     Dosage: 100 MG, UNK
     Route: 042
  2. ERYTHROMYCIN. [Suspect]
     Active Substance: ERYTHROMYCIN
     Indication: COUGH
     Dosage: UNK
     Route: 065

REACTIONS (5)
  - Pneumonia streptococcal [Unknown]
  - Cough [Unknown]
  - Sputum discoloured [Unknown]
  - Drug ineffective [Unknown]
  - Nasopharyngitis [Unknown]
